FAERS Safety Report 23977334 (Version 2)
Quarter: 2024Q3

REPORT INFORMATION
  Report Type: Spontaneous
  Country: SE (occurrence: SE)
  Receive Date: 20240614
  Receipt Date: 20240814
  Transmission Date: 20241017
  Serious: Yes (Hospitalization, Other)
  Sender: RECORDATI
  Company Number: SE-ORPHANEU-2024004252

PATIENT

DRUGS (3)
  1. SYLVANT [Suspect]
     Active Substance: SILTUXIMAB
     Indication: Castleman^s disease
     Dosage: UNK
     Route: 042
     Dates: start: 20230717
  2. WARFARIN [Suspect]
     Active Substance: WARFARIN
     Indication: Pelvic venous thrombosis
     Dosage: 2.5 MG
     Dates: start: 2000
  3. ZOLPIDEM [Concomitant]
     Active Substance: ZOLPIDEM TARTRATE
     Indication: Product used for unknown indication
     Dosage: 10 MG, ONE NIGHTLY

REACTIONS (2)
  - Gastrointestinal haemorrhage [Unknown]
  - Retroperitoneal haematoma [Recovered/Resolved]

NARRATIVE: CASE EVENT DATE: 20240101
